FAERS Safety Report 7398217-X (Version None)
Quarter: 2011Q2

REPORT INFORMATION
  Report Type: 
  Country: None (occurrence: None)
  Receive Date: 20110406
  Receipt Date: 20110325
  Transmission Date: 20111010
  Serious: Yes (Hospitalization, Other)
  Sender: FDA-Public Use
  Company Number: US-ELI_LILLY_AND_COMPANY-US201003002272

PATIENT
  Sex: Female

DRUGS (9)
  1. FORTEO [Suspect]
     Dosage: 20 UG, QD
     Dates: start: 20110317
  2. FORTEO [Suspect]
     Dosage: 20 UG, DAILY (1/D)
     Route: 065
  3. VITAMIN D [Concomitant]
  4. ALLERGY [Concomitant]
  5. FORTEO [Suspect]
     Indication: OSTEOPOROSIS
     Dosage: 20 UG, DAILY (1/D)
     Route: 065
     Dates: start: 20090716
  6. ZOCOR [Concomitant]
  7. CALCIUM [Concomitant]
  8. FORTEO [Suspect]
     Dosage: 20 UG, QD
     Dates: end: 20110211
  9. ASPIRIN [Concomitant]
     Dosage: UNK, QD

REACTIONS (11)
  - MALAISE [None]
  - ARTERIAL THERAPEUTIC PROCEDURE [None]
  - FAECES HARD [None]
  - SLEEP DISORDER [None]
  - AORTIC VALVE REPLACEMENT [None]
  - ABDOMINAL PAIN UPPER [None]
  - CARDIAC PACEMAKER INSERTION [None]
  - FATIGUE [None]
  - CONSTIPATION [None]
  - DIARRHOEA [None]
  - DYSPNOEA [None]
